FAERS Safety Report 9531652 (Version 2)
Quarter: 2013Q3

REPORT INFORMATION
  Report Type: Report from Study
  Country: US (occurrence: US)
  Receive Date: 20130918
  Receipt Date: 20130918
  Transmission Date: 20140515
  Serious: Yes (Other)
  Sender: FDA-Public Use
  Company Number: US-SANOFI-AVENTIS-2013SA083516

PATIENT
  Sex: Female

DRUGS (2)
  1. AUBAGIO [Suspect]
     Route: 048
  2. AUBAGIO [Suspect]
     Route: 048
     Dates: start: 20130806

REACTIONS (4)
  - Pneumonia [Unknown]
  - Blood pressure diastolic increased [Unknown]
  - Multiple sclerosis relapse [Unknown]
  - Stress [Unknown]
